FAERS Safety Report 22331869 (Version 1)
Quarter: 2023Q2

REPORT INFORMATION
  Report Type: Spontaneous
  Country: US (occurrence: US)
  Receive Date: 20230517
  Receipt Date: 20230517
  Transmission Date: 20230721
  Serious: Yes (Hospitalization, Other)
  Sender: FDA-Public Use
  Company Number: US-INDIVIOR EUROPE LIMITED-INDV-139275-2023

PATIENT
  Age: 62 Year
  Sex: Male

DRUGS (5)
  1. BUPRENORPHINE [Suspect]
     Active Substance: BUPRENORPHINE
     Indication: Drug use disorder
     Dosage: 300 MILLIGRAM, QMO
     Route: 065
  2. BUPRENORPHINE [Suspect]
     Active Substance: BUPRENORPHINE
  3. BUPRENORPHINE\NALOXONE [Suspect]
     Active Substance: BUPRENORPHINE\NALOXONE
     Indication: Drug use disorder
     Dosage: UNK
     Route: 060
  4. BUPRENORPHINE\NALOXONE [Suspect]
     Active Substance: BUPRENORPHINE\NALOXONE
     Dosage: 24 MG, TITRATED DOSE, QD
     Route: 060
  5. METHAMPHETAMINE [Suspect]
     Active Substance: METHAMPHETAMINE
     Indication: Product used for unknown indication
     Dosage: UNK
     Route: 042

REACTIONS (7)
  - Osteomyelitis [Unknown]
  - Streptococcal bacteraemia [Unknown]
  - Drug detoxification [Recovered/Resolved]
  - Drug abuse [Recovered/Resolved]
  - Procedural pain [Recovering/Resolving]
  - Drug dependence [Unknown]
  - Treatment noncompliance [Recovered/Resolved]
